FAERS Safety Report 9116673 (Version 1)
Quarter: 2013Q1

REPORT INFORMATION
  Report Type: Spontaneous
  Country: US (occurrence: US)
  Receive Date: 20130225
  Receipt Date: 20130225
  Transmission Date: 20140127
  Serious: No
  Sender: FDA-Public Use
  Company Number: US-TEVA-388054USA

PATIENT
  Sex: Female

DRUGS (1)
  1. QNASL [Suspect]
     Dates: start: 201301

REACTIONS (3)
  - Nasal congestion [Unknown]
  - Irritability [Unknown]
  - Malaise [Unknown]
